FAERS Safety Report 11080225 (Version 1)
Quarter: 2015Q2

REPORT INFORMATION
  Report Type: Spontaneous
  Country: ES (occurrence: None)
  Receive Date: 20150429
  Receipt Date: 20150429
  Transmission Date: 20150821
  Serious: Yes (Other)
  Sender: FDA-Public Use
  Company Number: 2015HINLIT0366

PATIENT

DRUGS (2)
  1. BOSENTAN [Suspect]
     Active Substance: BOSENTAN\BOSENTAN MONOHYDRATE
     Indication: PULMONARY HYPERTENSION
  2. SILDENAFIL. [Suspect]
     Active Substance: SILDENAFIL
     Indication: PULMONARY HYPERTENSION

REACTIONS (4)
  - Gamma-glutamyltransferase increased [None]
  - Hepatotoxicity [None]
  - Alanine aminotransferase increased [None]
  - Drug interaction [None]
